FAERS Safety Report 23736982 (Version 1)
Quarter: 2024Q2

REPORT INFORMATION
  Report Type: Other
  Country: US (occurrence: US)
  Receive Date: 20240412
  Receipt Date: 20240412
  Transmission Date: 20240716
  Serious: Yes (Hospitalization, Other)
  Sender: FDA-Public Use
  Company Number: US-Bion-012829

PATIENT
  Age: 28 Year
  Sex: Female

DRUGS (3)
  1. PROGESTERONE [Suspect]
     Active Substance: PROGESTERONE
     Indication: Ovulation induction
  2. FOLLISTIM [Concomitant]
     Active Substance: FOLLITROPIN
     Indication: Ovulation induction
     Route: 030
  3. MENOTROPINS [Concomitant]
     Active Substance: MENOTROPINS
     Indication: Ovulation induction

REACTIONS (1)
  - Ovarian hyperstimulation syndrome [Recovering/Resolving]
